FAERS Safety Report 16033962 (Version 4)
Quarter: 2019Q2

REPORT INFORMATION
  Report Type: Spontaneous
  Country: US (occurrence: US)
  Receive Date: 20190305
  Receipt Date: 20190619
  Transmission Date: 20190711
  Serious: Yes (Congenital Anomaly, Other)
  Sender: FDA-Public Use
  Company Number: PHEH2019US009524

PATIENT
  Sex: Female

DRUGS (4)
  1. ONDANSETRON [Suspect]
     Active Substance: ONDANSETRON
     Indication: FOETAL EXPOSURE DURING PREGNANCY
     Dosage: MOTHER DOSE: 8 MG, UNK
     Route: 064
  2. ZOFRAN [Suspect]
     Active Substance: ONDANSETRON HYDROCHLORIDE
     Indication: FOETAL EXPOSURE DURING PREGNANCY
     Route: 064
  3. ZOFRAN [Suspect]
     Active Substance: ONDANSETRON HYDROCHLORIDE
     Indication: FOETAL EXPOSURE DURING PREGNANCY
     Route: 064
  4. ONDANSETRON HYDROCHLORIDE. [Suspect]
     Active Substance: ONDANSETRON HYDROCHLORIDE
     Indication: FOETAL EXPOSURE DURING PREGNANCY
     Dosage: UNK
     Route: 064

REACTIONS (27)
  - Breathing-related sleep disorder [Unknown]
  - Deafness [Unknown]
  - Diarrhoea neonatal [Unknown]
  - Pyrexia [Unknown]
  - Otitis media [Unknown]
  - Eye infection [Unknown]
  - Sleep disorder [Unknown]
  - Gastrooesophageal reflux disease [Unknown]
  - Scar [Unknown]
  - Pierre Robin syndrome [Unknown]
  - Upper respiratory tract infection [Unknown]
  - Rhinitis allergic [Unknown]
  - Dysmorphism [Unknown]
  - Foetal exposure during pregnancy [Unknown]
  - Feeding disorder [Unknown]
  - Influenza [Unknown]
  - Retrognathia [Unknown]
  - Fall [Unknown]
  - Nasal injury [Unknown]
  - Cleft palate [Unknown]
  - Pneumonia [Unknown]
  - Dental caries [Unknown]
  - Skin laceration [Unknown]
  - Eustachian tube dysfunction [Unknown]
  - Cough [Unknown]
  - Cystic fibrosis [Unknown]
  - Language disorder [Unknown]
